FAERS Safety Report 23454286 (Version 1)
Quarter: 2024Q1

REPORT INFORMATION
  Report Type: Spontaneous
  Country: PL (occurrence: PL)
  Receive Date: 20240130
  Receipt Date: 20240130
  Transmission Date: 20240409
  Serious: Yes (Hospitalization)
  Sender: FDA-Public Use
  Company Number: None

PATIENT
  Age: 79 Year
  Sex: Male
  Weight: 83 kg

DRUGS (2)
  1. INSULIN ASPART [Suspect]
     Active Substance: INSULIN ASPART
     Dosage: 14 IU, QD(EVENING )
     Route: 058
     Dates: start: 201908, end: 20190918
  2. INSULIN ASPART [Suspect]
     Active Substance: INSULIN ASPART
     Indication: Type 1 diabetes mellitus
     Dosage: 18 IU, QD( MORNING )
     Route: 058
     Dates: start: 201908

REACTIONS (2)
  - Erythema [Recovered/Resolved]
  - Injection site erythema [Recovered/Resolved]
